FAERS Safety Report 8810615 (Version 1)
Quarter: 2012Q4

REPORT INFORMATION
  Report Type: 
  Country: US (occurrence: US)
  Receive Date: 20120927
  Receipt Date: 20120927
  Transmission Date: 20130627
  Serious: No
  Sender: FDA-Public Use
  Company Number: US-009507513-1209USA007538

PATIENT
  Age: 82 Year
  Sex: Male

DRUGS (2)
  1. ZETIA [Suspect]
     Indication: BLOOD CHOLESTEROL INCREASED
     Dosage: 10 mg, qd
     Route: 048
     Dates: start: 201109
  2. WELCHOL [Concomitant]
     Dosage: UNK
     Dates: start: 201206

REACTIONS (1)
  - Gait disturbance [Not Recovered/Not Resolved]
